FAERS Safety Report 6707255-9 (Version None)
Quarter: 2010Q2

REPORT INFORMATION
  Report Type: 
  Country: None (occurrence: None)
  Receive Date: 20100503
  Receipt Date: 20090324
  Transmission Date: 20101027
  Serious: No
  Sender: FDA-Public Use
  Company Number: US-ASTRAZENECA-2009UW07478

PATIENT
  Sex: Female
  Weight: 86.2 kg

DRUGS (9)
  1. NEXIUM [Suspect]
     Indication: GASTROOESOPHAGEAL REFLUX DISEASE
     Route: 048
     Dates: start: 20090301
  2. OMEPRAZOLE [Concomitant]
  3. LEVOTHYROXINE [Concomitant]
     Indication: THYROID DISORDER
  4. PAROXETINE HCL [Concomitant]
     Indication: DEPRESSION
  5. HYDROCHLOROTHIAZIDE [Concomitant]
     Indication: BLOOD PRESSURE ABNORMAL
  6. FEXOFENADINE [Concomitant]
     Indication: MULTIPLE ALLERGIES
  7. ASTELIN [Concomitant]
     Indication: HYPERSENSITIVITY
  8. AMLODIPINE [Concomitant]
     Indication: BLOOD PRESSURE
  9. METFORMIN [Concomitant]
     Indication: DIABETES MELLITUS

REACTIONS (2)
  - CHEILITIS [None]
  - GASTROOESOPHAGEAL REFLUX DISEASE [None]
